FAERS Safety Report 18626748 (Version 3)
Quarter: 2021Q1

REPORT INFORMATION
  Report Type: Report from Study
  Country: US (occurrence: US)
  Receive Date: 20201217
  Receipt Date: 20210317
  Transmission Date: 20210419
  Serious: Yes (Other)
  Sender: FDA-Public Use
  Company Number: US-BIOVITRUM-2020US7421

PATIENT
  Sex: Female

DRUGS (1)
  1. KINERET [Suspect]
     Active Substance: ANAKINRA
     Indication: PRODUCT USED FOR UNKNOWN INDICATION
     Dosage: 100 MG ONE DAY THEN 200 MG THE NEXT DAY
     Route: 058
     Dates: start: 20190423

REACTIONS (4)
  - Nasal discomfort [Unknown]
  - Intentional product misuse [Unknown]
  - Immunodeficiency [Unknown]
  - Stomatitis [Unknown]
